FAERS Safety Report 8184125-3 (Version None)
Quarter: 2012Q1

REPORT INFORMATION
  Report Type: 
  Country: None (occurrence: None)
  Receive Date: 20120305
  Receipt Date: 20120304
  Transmission Date: 20120608
  Serious: Yes (Other)
  Sender: FDA-Public Use
  Company Number: US-PFIZER INC-2012057456

PATIENT
  Sex: Female

DRUGS (1)
  1. LYRICA [Suspect]
     Indication: LIMB DISCOMFORT
     Dosage: UNK
     Route: 048

REACTIONS (1)
  - FOREIGN BODY [None]
